FAERS Safety Report 6525224-9 (Version None)
Quarter: 2010Q1

REPORT INFORMATION
  Report Type: 
  Country: None (occurrence: None)
  Receive Date: 20100104
  Receipt Date: 20091224
  Transmission Date: 20100710
  Serious: Yes (Hospitalization)
  Sender: FDA-Public Use
  Company Number: US-JNJFOC-20091207288

PATIENT
  Sex: Male
  Weight: 131.54 kg

DRUGS (4)
  1. REMICADE [Suspect]
     Dosage: DOSAGE: 6 VIALS (FREQUENCY UNSPECIFIED)
     Route: 042
  2. REMICADE [Suspect]
     Dosage: DOSAGE: 6 VIALS (FREQUENCY UNSPECIFIED)
     Route: 042
  3. REMICADE [Suspect]
     Dosage: DOSAGE: 6 VIALS (FREQUENCY UNSPECIFIED)
     Route: 042
  4. REMICADE [Suspect]
     Indication: ANKYLOSING SPONDYLITIS
     Dosage: DOSAGE: 6 VIALS (FREQUENCY UNSPECIFIED)
     Route: 042

REACTIONS (3)
  - BACK PAIN [None]
  - DRUG INEFFECTIVE [None]
  - MUSCLE SPASMS [None]
